FAERS Safety Report 21646765 (Version 1)
Quarter: 2022Q4

REPORT INFORMATION
  Report Type: Spontaneous
  Country: FR (occurrence: FR)
  Receive Date: 20221127
  Receipt Date: 20221127
  Transmission Date: 20230113
  Serious: Yes (Other)
  Sender: FDA-Public Use
  Company Number: None

PATIENT
  Age: 66 Year
  Sex: Female

DRUGS (3)
  1. CARBOPLATIN [Suspect]
     Active Substance: CARBOPLATIN
     Indication: Bronchial carcinoma
     Dosage: UNSPECIFIED , DURATION : 71 DAYS
     Dates: start: 20220524, end: 20220803
  2. KEYTRUDA [Suspect]
     Active Substance: PEMBROLIZUMAB
     Indication: Bronchial carcinoma
     Dosage: UNSPECIFIED , DURATION : 23 DAYS
     Dates: start: 20220524, end: 20220616
  3. ALIMTA [Suspect]
     Active Substance: PEMETREXED DISODIUM
     Indication: Bronchial carcinoma
     Dosage: UNSPECIFIED, FORM STRENGTH : 500 MG, THERAPY END DATE : NASK
     Dates: start: 20220524

REACTIONS (1)
  - Rash maculo-papular [Recovering/Resolving]
